FAERS Safety Report 16914181 (Version 2)
Quarter: 2019Q4

REPORT INFORMATION
  Report Type: Other
  Country: NL (occurrence: NL)
  Receive Date: 20191014
  Receipt Date: 20191015
  Transmission Date: 20200122
  Serious: Yes (Hospitalization)
  Sender: FDA-Public Use
  Company Number: NL-APOTEX-2019AP023100

PATIENT
  Age: 53 Year
  Sex: Female
  Weight: 45 kg

DRUGS (1)
  1. RIZATRIPTAN. [Suspect]
     Active Substance: RIZATRIPTAN
     Indication: MIGRAINE
     Dosage: 1 DF, UNK (3)
     Route: 065
     Dates: start: 20180603, end: 20190723

REACTIONS (3)
  - Aggression [Recovering/Resolving]
  - Overdose [Unknown]
  - Agitation [Recovering/Resolving]

NARRATIVE: CASE EVENT DATE: 20190427
